FAERS Safety Report 5384657-7 (Version None)
Quarter: 2007Q3

REPORT INFORMATION
  Report Type: 
  Country: None (occurrence: None)
  Receive Date: 20070710
  Receipt Date: 20061214
  Transmission Date: 20080115
  Serious: Yes (Hospitalization)
  Sender: FDA-Public Use
  Company Number: 2006-02871

PATIENT
  Age: 72 Year
  Sex: Female
  Weight: 45.3 kg

DRUGS (3)
  1. VELCADE [Suspect]
     Indication: MULTIPLE MYELOMA
     Dosage: 1.30 MG/M2, INTRAVENOUS
     Route: 042
     Dates: start: 20060421, end: 20060526
  2. ARANESP [Suspect]
     Indication: ANAEMIA
     Dosage: 200.00 UG, SUBCUTANEOUS
     Route: 058
     Dates: start: 20061020
  3. ZOMETA [Suspect]
     Indication: MULTIPLE MYELOMA
     Dosage: 3.00 MG, INTRAVENOUS
     Route: 042
     Dates: start: 20061020

REACTIONS (2)
  - ANAEMIA [None]
  - HYPONATRAEMIA [None]
